FAERS Safety Report 8919398 (Version 2)
Quarter: 2013Q1

REPORT INFORMATION
  Report Type: Spontaneous
  Country: US (occurrence: US)
  Receive Date: 20121121
  Receipt Date: 20130318
  Transmission Date: 20140127
  Serious: No
  Sender: FDA-Public Use
  Company Number: US-PFIZER INC-2012287691

PATIENT
  Age: 60 Year
  Sex: Female

DRUGS (5)
  1. VFEND [Suspect]
     Indication: PLASMA CELL MYELOMA
     Dosage: 200 MG, 2X/DAY
     Route: 048
     Dates: start: 20101030
  2. VFEND [Suspect]
     Indication: PROPHYLAXIS
     Dosage: 200 MG, 2X/DAY
     Route: 048
     Dates: start: 20121102
  3. MIRALAX [Concomitant]
     Indication: CONSTIPATION
     Dosage: 17 G, AS DIRECTED
  4. ALENDRONATE SODIUM [Concomitant]
     Indication: OSTEOPOROSIS
     Dosage: 70 MG, WEEKLY
  5. OMEGA 3 PLUS D3 FISH OIL [Concomitant]
     Dosage: DAILY

REACTIONS (4)
  - Malaise [Recovered/Resolved]
  - Drug intolerance [Recovered/Resolved]
  - Neutrophil count decreased [Unknown]
  - Neutropenia [Unknown]
